FAERS Safety Report 9471218 (Version 1)
Quarter: 2013Q3

REPORT INFORMATION
  Report Type: Spontaneous
  Country: US (occurrence: US)
  Receive Date: 20130822
  Receipt Date: 20130822
  Transmission Date: 20140515
  Serious: No
  Sender: FDA-Public Use
  Company Number: US-TARO-2013P1003456

PATIENT
  Age: 71 Year
  Sex: Female

DRUGS (1)
  1. LAMISIL [Suspect]
     Indication: TINEA PEDIS
     Route: 061
     Dates: start: 201303, end: 2013

REACTIONS (2)
  - Drug ineffective [Not Recovered/Not Resolved]
  - Tinea pedis [Not Recovered/Not Resolved]
